FAERS Safety Report 25286948 (Version 3)
Quarter: 2025Q2

REPORT INFORMATION
  Report Type: Spontaneous
  Country: DE (occurrence: DE)
  Receive Date: 20250509
  Receipt Date: 20250622
  Transmission Date: 20250717
  Serious: Yes (Other)
  Sender: AUROBINDO
  Company Number: DE-BRISTOL-MYERS SQUIBB COMPANY-2024-053327

PATIENT
  Age: 67 Year
  Sex: Male
  Weight: 61 kg

DRUGS (11)
  1. OXALIPLATIN [Suspect]
     Active Substance: OXALIPLATIN
     Indication: Oesophageal squamous cell carcinoma
     Route: 042
     Dates: start: 20230718
  2. METOPROLOL [Suspect]
     Active Substance: METOPROLOL
     Indication: Hypertension
     Dosage: 95 MILLIGRAM, ONCE A DAY
     Route: 048
     Dates: start: 1985
  3. RAMIPRIL [Suspect]
     Active Substance: RAMIPRIL
     Indication: Hypertension
     Dosage: 5 MILLIGRAM, ONCE A DAY
     Route: 048
     Dates: start: 202212
  4. FLUOROURACIL [Suspect]
     Active Substance: FLUOROURACIL
     Indication: Oesophageal squamous cell carcinoma
     Route: 042
     Dates: start: 20230718
  5. OPDIVO [Suspect]
     Active Substance: NIVOLUMAB
     Indication: Oesophageal squamous cell carcinoma
     Dosage: 240 MILLIGRAM, UNK
     Route: 042
     Dates: start: 20230718
  6. AMLODIPINE BESYLATE [Concomitant]
     Active Substance: AMLODIPINE BESYLATE
     Indication: Product used for unknown indication
     Dosage: 5 MILLIGRAM, ONCE A DAY
     Route: 048
     Dates: start: 202212
  7. LEUCOVORIN [Concomitant]
     Active Substance: LEUCOVORIN\LEUCOVORIN CALCIUM
     Indication: Prophylaxis
     Route: 042
     Dates: start: 20230718
  8. PANTOPRAZOLE SODIUM [Concomitant]
     Active Substance: PANTOPRAZOLE SODIUM
     Indication: Product used for unknown indication
     Route: 048
     Dates: start: 202305
  9. ZOMETA [Concomitant]
     Active Substance: ZOLEDRONIC ACID
     Indication: Prophylaxis
     Route: 042
     Dates: start: 20231129
  10. FRESUBIN [Concomitant]
     Active Substance: AMINO ACIDS\DEXTROSE\ELECTROLYTES NOS\SOYBEAN OIL\VITAMINS
     Indication: Product used for unknown indication
     Route: 048
     Dates: start: 20230727
  11. CALCIUM CARBONATE [Concomitant]
     Active Substance: CALCIUM CARBONATE
     Indication: Product used for unknown indication
     Dosage: 500 MILLIGRAM, ONCE A DAY
     Route: 048
     Dates: start: 20231129

REACTIONS (5)
  - Neutropenia [Recovered/Resolved with Sequelae]
  - Glomerular filtration rate decreased [Not Recovered/Not Resolved]
  - C-reactive protein increased [Not Recovered/Not Resolved]
  - Hypotension [Unknown]
  - General physical health deterioration [Unknown]

NARRATIVE: CASE EVENT DATE: 20240325
